FAERS Safety Report 24878313 (Version 1)
Quarter: 2025Q1

REPORT INFORMATION
  Report Type: Report from Study
  Country: JP (occurrence: JP)
  Receive Date: 20250123
  Receipt Date: 20250123
  Transmission Date: 20250408
  Serious: Yes (Other)
  Sender: JOHNSON AND JOHNSON
  Company Number: JP-JNJFOC-20250171564

PATIENT

DRUGS (1)
  1. IMBRUVICA [Suspect]
     Active Substance: IBRUTINIB
     Indication: Product used for unknown indication
     Route: 048

REACTIONS (23)
  - Cardiotoxicity [Unknown]
  - Embolism arterial [Unknown]
  - Myocardial infarction [Unknown]
  - Ventricular tachyarrhythmia [Unknown]
  - Cardiomyopathy [Unknown]
  - Respiratory failure [Unknown]
  - Cardiac failure [Unknown]
  - Shock [Unknown]
  - Myocarditis [Unknown]
  - Pericarditis [Unknown]
  - Embolism venous [Unknown]
  - Cerebral haemorrhage [Unknown]
  - Pulmonary hypertension [Unknown]
  - Polymyalgia rheumatica [Unknown]
  - Giant cell arteritis [Unknown]
  - Hypertension [Unknown]
  - Ischaemia [Unknown]
  - Bradyarrhythmia [Unknown]
  - Endocardial disease [Unknown]
  - Supraventricular tachyarrhythmia [Unknown]
  - Haemorrhage [Unknown]
  - Laboratory test abnormal [Unknown]
  - Vasculitis [Unknown]
